FAERS Safety Report 7985836-2 (Version None)
Quarter: 2011Q4

REPORT INFORMATION
  Report Type: 
  Country: None (occurrence: None)
  Receive Date: 20111214
  Receipt Date: 20111206
  Transmission Date: 20120403
  Serious: Yes (Hospitalization, Disabling)
  Sender: FDA-Public Use
  Company Number: 2010SP063654

PATIENT
  Age: 36 Year
  Sex: Female
  Weight: 61.2356 kg

DRUGS (7)
  1. LEXAPRO [Suspect]
     Indication: PRODUCT USED FOR UNKNOWN INDICATION
  2. NUVARING [Suspect]
     Indication: DYSMENORRHOEA
     Dates: start: 20080825, end: 20081201
  3. NUVARING [Suspect]
     Indication: FUNGAL INFECTION
     Dates: start: 20080825, end: 20081201
  4. NUVARING [Suspect]
     Indication: VAGINITIS BACTERIAL
     Dates: start: 20080825, end: 20081201
  5. NUVARING [Suspect]
     Indication: DYSMENORRHOEA
     Dates: start: 20040520
  6. NUVARING [Suspect]
     Indication: FUNGAL INFECTION
     Dates: start: 20040520
  7. NUVARING [Suspect]
     Indication: VAGINITIS BACTERIAL
     Dates: start: 20040520

REACTIONS (40)
  - VULVOVAGINAL MYCOTIC INFECTION [None]
  - HYPERHIDROSIS [None]
  - DEPRESSION [None]
  - PELVIC PAIN [None]
  - MUSCLE STRAIN [None]
  - METRORRHAGIA [None]
  - DRUG INTOLERANCE [None]
  - BACK PAIN [None]
  - SLEEP APNOEA SYNDROME [None]
  - HOT FLUSH [None]
  - INSOMNIA [None]
  - IRRITABLE BOWEL SYNDROME [None]
  - HERPES DERMATITIS [None]
  - VIRAL INFECTION [None]
  - VERTIGO [None]
  - SLEEP DISORDER [None]
  - PHARYNGITIS [None]
  - SINUSITIS [None]
  - INFLUENZA LIKE ILLNESS [None]
  - CEREBELLAR HAEMORRHAGE [None]
  - EPSTEIN-BARR VIRUS INFECTION [None]
  - OSTEOARTHRITIS [None]
  - CONSTIPATION [None]
  - PARAESTHESIA [None]
  - PULMONARY EMBOLISM [None]
  - MIGRAINE [None]
  - URINARY TRACT INFECTION [None]
  - LIBIDO DECREASED [None]
  - OVARIAN CYST [None]
  - FIBROMYALGIA [None]
  - MEMORY IMPAIRMENT [None]
  - DRY EYE [None]
  - ONYCHOCLASIS [None]
  - LYMPHADENOPATHY [None]
  - HYPERCOAGULATION [None]
  - FEELING JITTERY [None]
  - FLATULENCE [None]
  - NIGHTMARE [None]
  - DYSGEUSIA [None]
  - CEREBRAL HAEMORRHAGE [None]
